FAERS Safety Report 24204695 (Version 2)
Quarter: 2025Q4

REPORT INFORMATION
  Report Type: Spontaneous
  Country: GB (occurrence: GB)
  Receive Date: 20240813
  Receipt Date: 20251110
  Transmission Date: 20260118
  Serious: Yes (Disabling)
  Sender: MYLAN
  Company Number: GB-MHRA-MED-202309131553585350-RLQSD

PATIENT
  Age: 38 Year
  Sex: Female

DRUGS (8)
  1. ARIPIPRAZOLE [Suspect]
     Active Substance: ARIPIPRAZOLE
     Indication: Product used for unknown indication
     Dosage: 400 MILLIGRAM
  2. ARIPIPRAZOLE [Suspect]
     Active Substance: ARIPIPRAZOLE
     Dosage: 400 MILLIGRAM
     Route: 065
  3. ARIPIPRAZOLE [Suspect]
     Active Substance: ARIPIPRAZOLE
     Dosage: 400 MILLIGRAM
     Route: 065
  4. ARIPIPRAZOLE [Suspect]
     Active Substance: ARIPIPRAZOLE
     Dosage: 400 MILLIGRAM
  5. PALIPERIDONE [Suspect]
     Active Substance: PALIPERIDONE
     Indication: Eating disorder
     Dosage: 4 DOSAGE FORM (NUMBER OF SEPARATE DOSES, TOTAL OF 4 INJECTIONS WITH 2 IN DEC, 1 IN JAN AND 1 IN FEB)
     Dates: start: 20221215, end: 20230315
  6. PALIPERIDONE [Suspect]
     Active Substance: PALIPERIDONE
     Dosage: 4 DOSAGE FORM (NUMBER OF SEPARATE DOSES, TOTAL OF 4 INJECTIONS WITH 2 IN DEC, 1 IN JAN AND 1 IN FEB)
     Route: 065
     Dates: start: 20221215, end: 20230315
  7. PALIPERIDONE [Suspect]
     Active Substance: PALIPERIDONE
     Dosage: 4 DOSAGE FORM (NUMBER OF SEPARATE DOSES, TOTAL OF 4 INJECTIONS WITH 2 IN DEC, 1 IN JAN AND 1 IN FEB)
     Route: 065
     Dates: start: 20221215, end: 20230315
  8. PALIPERIDONE [Suspect]
     Active Substance: PALIPERIDONE
     Dosage: 4 DOSAGE FORM (NUMBER OF SEPARATE DOSES, TOTAL OF 4 INJECTIONS WITH 2 IN DEC, 1 IN JAN AND 1 IN FEB)
     Dates: start: 20221215, end: 20230315

REACTIONS (10)
  - Insomnia [Not Recovered/Not Resolved]
  - Gait disturbance [Not Recovered/Not Resolved]
  - Disturbance in attention [Not Recovered/Not Resolved]
  - Apathy [Not Recovered/Not Resolved]
  - Anhedonia [Not Recovered/Not Resolved]
  - Off label use [Unknown]
  - Illiteracy [Not Recovered/Not Resolved]
  - Lethargy [Unknown]
  - Diarrhoea [Unknown]
  - Constipation [Unknown]

NARRATIVE: CASE EVENT DATE: 20221215
